FAERS Safety Report 24244853 (Version 1)
Quarter: 2024Q3

REPORT INFORMATION
  Report Type: Spontaneous
  Country: US (occurrence: US)
  Receive Date: 20240823
  Receipt Date: 20240823
  Transmission Date: 20241017
  Serious: Yes (Other)
  Sender: MYLAN
  Company Number: US-MYLANLABS-2024M1076537

PATIENT
  Sex: Female

DRUGS (1)
  1. DILANTIN [Suspect]
     Active Substance: PHENYTOIN
     Indication: Seizure
     Dosage: 100 MILLIGRAM, QD (AT NIGHT ONCE A DAY)
     Route: 065

REACTIONS (5)
  - Seizure [Unknown]
  - Anticonvulsant drug level decreased [Unknown]
  - COVID-19 [Unknown]
  - Malabsorption [Unknown]
  - Head injury [Unknown]
